FAERS Safety Report 21125345 (Version 3)
Quarter: 2022Q3

REPORT INFORMATION
  Report Type: Spontaneous
  Country: AU (occurrence: AU)
  Receive Date: 20220725
  Receipt Date: 20220729
  Transmission Date: 20221026
  Serious: Yes (Other)
  Sender: FDA-Public Use
  Company Number: AU-PFIZER INC-PV202200026522

PATIENT
  Sex: Female

DRUGS (2)
  1. DILANTIN [Suspect]
     Active Substance: PHENYTOIN
     Indication: Seizure
     Dosage: UNK
  2. MYSOLINE [Suspect]
     Active Substance: PRIMIDONE
     Indication: Seizure
     Dosage: UNK

REACTIONS (10)
  - Hepatic fibrosis [Unknown]
  - Intentional product use issue [Unknown]
  - Seizure [Unknown]
  - Fall [Unknown]
  - Cervical vertebral fracture [Unknown]
  - Rib fracture [Unknown]
  - Facial bones fracture [Unknown]
  - Hepatic cirrhosis [Unknown]
  - Product formulation issue [Unknown]
  - Weight decreased [Unknown]
